FAERS Safety Report 7384318-9 (Version None)
Quarter: 2011Q1

REPORT INFORMATION
  Report Type: 
  Country: None (occurrence: None)
  Receive Date: 20110330
  Receipt Date: 20110317
  Transmission Date: 20110831
  Serious: Yes (Other)
  Sender: FDA-Public Use
  Company Number: US-CELGENEUS-163-20785-11032288

PATIENT
  Age: 40 Year
  Sex: Male
  Weight: 68.1 kg

DRUGS (3)
  1. THALOMID [Suspect]
     Dosage: 150 MILLIGRAM
     Route: 048
  2. DEXAMETHASONE [Concomitant]
     Route: 065
  3. VELCADE [Concomitant]
     Dosage: 1 MILLIGRAM/SQ. METER
     Route: 065

REACTIONS (2)
  - ADVERSE DRUG REACTION [None]
  - MYELODYSPLASTIC SYNDROME [None]
